FAERS Safety Report 20198624 (Version 1)
Quarter: 2021Q4

REPORT INFORMATION
  Report Type: Spontaneous
  Country: US (occurrence: None)
  Receive Date: 20211216
  Receipt Date: 20211216
  Transmission Date: 20220304
  Serious: No
  Sender: FDA-Public Use
  Company Number: None

PATIENT
  Age: 74 Year
  Sex: Female
  Weight: 60.61 kg

DRUGS (1)
  1. CAPECITABINE [Suspect]
     Active Substance: CAPECITABINE
     Indication: Bone cancer
     Dosage: FREQUENCY : DAILY;?
     Route: 048

REACTIONS (3)
  - Peripheral swelling [None]
  - Gait disturbance [None]
  - Diarrhoea [None]

NARRATIVE: CASE EVENT DATE: 20211216
